FAERS Safety Report 7227723-3 (Version None)
Quarter: 2011Q1

REPORT INFORMATION
  Report Type: 
  Country: None (occurrence: None)
  Receive Date: 20110111
  Receipt Date: 20110111
  Transmission Date: 20110831
  Serious: Yes (Hospitalization)
  Sender: FDA-Public Use
  Company Number: None

PATIENT
  Age: 59 Year
  Sex: Male
  Weight: 76.7486 kg

DRUGS (12)
  1. METFORMIN HCL [Concomitant]
  2. PROCHLORPERAZINE [Concomitant]
  3. ZOLPIDEM [Concomitant]
  4. TAXOTERE [Suspect]
     Indication: SARCOMA
     Dosage: 79 MG EVERY 2 WEEKS IV
     Route: 042
     Dates: start: 20101027, end: 20101124
  5. AMIODARONE HCL [Concomitant]
  6. MIRALAX [Concomitant]
  7. METOPROLOL TARTRATE [Concomitant]
  8. GLIMPERIDE [Concomitant]
  9. ALIMTA [Suspect]
     Indication: SARCOMA
     Dosage: 990 MG EVERY 2 WEEKS IV
     Route: 042
     Dates: start: 20101027, end: 20101124
  10. ASPIRIN [Concomitant]
  11. HYDROCODONE BITARTRATE [Concomitant]
  12. OXYCODONE HCL [Concomitant]

REACTIONS (8)
  - CONDITION AGGRAVATED [None]
  - PERICARDIAL EFFUSION [None]
  - ATRIAL FIBRILLATION [None]
  - CELLULITIS [None]
  - SARCOMA METASTATIC [None]
  - DISEASE RECURRENCE [None]
  - PYREXIA [None]
  - INJECTION SITE EXTRAVASATION [None]
